FAERS Safety Report 6295031-3 (Version None)
Quarter: 2009Q3

REPORT INFORMATION
  Report Type: 
  Country: None (occurrence: None)
  Receive Date: 20090803
  Receipt Date: 20090727
  Transmission Date: 20100115
  Serious: Yes (Hospitalization)
  Sender: FDA-Public Use
  Company Number: FR-BRISTOL-MYERS SQUIBB COMPANY-14721328

PATIENT
  Age: 77 Year
  Sex: Male

DRUGS (4)
  1. CETUXIMAB [Suspect]
     Indication: RECTAL CANCER
     Dosage: RECENT INF:20NOV2008
     Route: 042
     Dates: start: 20081106
  2. XELODA [Suspect]
     Indication: RECTAL CANCER
     Dosage: RECENT ADMIN:27NOV2008 FORMULATION:TABLET
     Route: 048
     Dates: start: 20081106
  3. OXALIPLATIN [Suspect]
     Indication: RECTAL CANCER
     Dosage: RECENT INF:20NOV2008
     Route: 042
     Dates: start: 20081106
  4. RADIOTHERAPY [Suspect]
     Indication: RECTAL CANCER
     Dosage: 2DF=2GY;RECENT ADMIN:02DEC2008
     Dates: start: 20081106

REACTIONS (1)
  - SUBILEUS [None]
